FAERS Safety Report 9031271 (Version 2)
Quarter: 2013Q1

REPORT INFORMATION
  Report Type: Spontaneous
  Country: JP (occurrence: JP)
  Receive Date: 20130114
  Receipt Date: 20130114
  Transmission Date: 20140127
  Serious: Yes (Hospitalization)
  Sender: FDA-Public Use
  Company Number: JP-PFIZER INC-2012331444

PATIENT
  Sex: Female

DRUGS (1)
  1. ALDACTONE A [Suspect]
     Dosage: 50 MG, DAILY
     Route: 048
     Dates: start: 201211

REACTIONS (2)
  - Breast pain [Recovered/Resolved]
  - Breast swelling [Recovered/Resolved]
